FAERS Safety Report 7228457-1 (Version None)
Quarter: 2011Q1

REPORT INFORMATION
  Report Type: 
  Country: None (occurrence: None)
  Receive Date: 20110114
  Receipt Date: 20110104
  Transmission Date: 20110831
  Serious: Yes (Other)
  Sender: FDA-Public Use
  Company Number: HU-AMGEN-HUNCT2010008451

PATIENT
  Sex: Female

DRUGS (13)
  1. NITROMINT [Concomitant]
     Dosage: UNK UNK, Q12H
     Route: 048
     Dates: start: 20090330
  2. VOLTAREN [Concomitant]
     Dosage: UNK UNK, PRN
     Route: 048
     Dates: start: 20090330
  3. DONALGIN [Concomitant]
     Dosage: UNK UNK, TID
     Route: 048
     Dates: start: 20100402
  4. CAVINTON [Concomitant]
     Dosage: UNK UNK, Q8H
     Route: 048
     Dates: start: 19800101
  5. ASPIRIN [Concomitant]
     Dosage: UNK MG, UNK
     Route: 048
     Dates: start: 20050419
  6. KALDYUM [Concomitant]
     Indication: CARDIAC FAILURE
     Dosage: 600 MG, 2 TIMES/WK
     Route: 048
     Dates: start: 20080814
  7. CORDAFLEX [Concomitant]
     Dosage: UNK UNK, BID
     Route: 048
     Dates: start: 20090330
  8. CALCICHEW D3 [Concomitant]
     Indication: OSTEOPOROSIS
     Dosage: UNK UNK, Q12H
     Dates: start: 20090312
  9. DUOPRIL                            /00896801/ [Concomitant]
     Dosage: UNK UNK, QD
     Route: 048
     Dates: start: 20050101
  10. ALGOPYRIN                          /06276704/ [Concomitant]
     Dosage: 20 MG, PRN
     Dates: start: 20090330
  11. DENOSUMAB [Suspect]
     Indication: OSTEOPOROSIS POSTMENOPAUSAL
     Dosage: 60 MG, Q6MO
     Route: 058
     Dates: start: 20080306, end: 20100909
  12. FUROSEMID                          /00032601/ [Concomitant]
     Dosage: UNK UNK, 2 TIMES/WK
     Route: 048
     Dates: start: 20080814
  13. SIMVACOL [Concomitant]
     Dosage: 20 MG, UNK
     Route: 048
     Dates: start: 20050420

REACTIONS (2)
  - OSTEOMYELITIS [None]
  - OSTEONECROSIS OF JAW [None]
